FAERS Safety Report 16868448 (Version 1)
Quarter: 2019Q3

REPORT INFORMATION
  Report Type: Spontaneous
  Country: US (occurrence: US)
  Receive Date: 20190930
  Receipt Date: 20190930
  Transmission Date: 20191005
  Serious: No
  Sender: FDA-Public Use
  Company Number: US-PFIZER INC-2019044377

PATIENT
  Age: 56 Year
  Sex: Male

DRUGS (2)
  1. BOSULIF [Suspect]
     Active Substance: BOSUTINIB MONOHYDRATE
     Dosage: 400 MG, DAILY [TAKE 4 TABLETS]
     Route: 048
     Dates: start: 20180501
  2. BOSULIF [Suspect]
     Active Substance: BOSUTINIB MONOHYDRATE
     Indication: CHRONIC MYELOID LEUKAEMIA
     Dosage: 400 MG, DAILY
     Route: 048
     Dates: start: 20180728

REACTIONS (6)
  - Diarrhoea [Recovering/Resolving]
  - Fatigue [Unknown]
  - Product dose omission [Unknown]
  - Arthralgia [Unknown]
  - Headache [Unknown]
  - Joint swelling [Unknown]

NARRATIVE: CASE EVENT DATE: 20190121
